FAERS Safety Report 6202480-8 (Version None)
Quarter: 2009Q2

REPORT INFORMATION
  Report Type: 
  Country: None (occurrence: None)
  Receive Date: 20090526
  Receipt Date: 20090513
  Transmission Date: 20091009
  Serious: Yes (Other)
  Sender: FDA-Public Use
  Company Number: GB-SANOFI-SYNTHELABO-A01200904690

PATIENT
  Sex: Male
  Weight: 75 kg

DRUGS (6)
  1. AMLODIPINE [Concomitant]
     Indication: HYPERTENSION
     Route: 048
     Dates: start: 20030101
  2. COZAAR [Concomitant]
     Indication: HYPERTENSION
     Route: 048
     Dates: start: 20030101
  3. GLUCOPHAGE [Concomitant]
     Indication: TYPE 2 DIABETES MELLITUS
     Route: 048
     Dates: start: 20050101
  4. PLAVIX [Suspect]
     Indication: HYPERTENSION
     Route: 048
     Dates: start: 20050101
  5. PLAVIX [Interacting]
     Indication: TYPE 2 DIABETES MELLITUS
     Route: 048
     Dates: start: 20050101
  6. CIPROFLOXACIN HCL [Interacting]
     Indication: PROSTATITIS
     Route: 065

REACTIONS (6)
  - ANGIOEDEMA [None]
  - COUGH [None]
  - DRUG INTERACTION [None]
  - PRURITUS [None]
  - URTICARIA [None]
  - WHEEZING [None]
